FAERS Safety Report 5197417-7 (Version None)
Quarter: 2006Q4

REPORT INFORMATION
  Report Type: 
  Country: None (occurrence: None)
  Receive Date: 20060927
  Receipt Date: 20060712
  Transmission Date: 20070319
  Serious: Yes (Other)
  Sender: FDA-Public Use
  Company Number: 2006RL000256

PATIENT
  Age: 50 Year
  Sex: Male
  Weight: 99.7913 kg

DRUGS (5)
  1. FENOFIBRATE [Suspect]
     Indication: BLOOD TRIGLYCERIDES INCREASED
     Dosage: 43 MG; QD; PO
     Route: 048
     Dates: start: 20050616, end: 20051012
  2. BENICAR [Concomitant]
  3. ATENOLOL [Concomitant]
  4. NEXIUM [Concomitant]
  5. PREVACID [Concomitant]

REACTIONS (3)
  - CATARACT [None]
  - HEADACHE [None]
  - VISION BLURRED [None]
